FAERS Safety Report 13618467 (Version 1)
Quarter: 2017Q2

REPORT INFORMATION
  Report Type: Spontaneous
  Country: US (occurrence: US)
  Receive Date: 20170606
  Receipt Date: 20170606
  Transmission Date: 20170830
  Serious: No
  Sender: FDA-Public Use
  Company Number: US-ABBVIE-16P-163-1749499-00

PATIENT
  Age: 83 Year
  Sex: Male
  Weight: 69.46 kg

DRUGS (1)
  1. DRONACAPA [Suspect]
     Active Substance: DRONABINOL
     Indication: PRODUCT USED FOR UNKNOWN INDICATION
     Route: 048
     Dates: start: 20160909, end: 20160909

REACTIONS (3)
  - Dizziness [Recovered/Resolved]
  - Metamorphopsia [Recovered/Resolved]
  - Limb discomfort [Recovered/Resolved]

NARRATIVE: CASE EVENT DATE: 20160909
